FAERS Safety Report 6004327-1 (Version None)
Quarter: 2008Q4

REPORT INFORMATION
  Report Type: 
  Country: None (occurrence: None)
  Receive Date: 20081215
  Receipt Date: 20081215
  Transmission Date: 20090506
  Serious: No
  Sender: FDA-Public Use
  Company Number: None

PATIENT
  Age: 12 Year
  Sex: Male
  Weight: 68.0396 kg

DRUGS (1)
  1. SINGULAIR [Suspect]
     Indication: ASTHMA
     Dosage: 1 CHEW TABLET DAILY PO
     Route: 048
     Dates: start: 20081001, end: 20081212

REACTIONS (9)
  - AFFECTIVE DISORDER [None]
  - ANXIETY [None]
  - CRYING [None]
  - DEPRESSION [None]
  - EDUCATIONAL PROBLEM [None]
  - MALAISE [None]
  - PSYCHOMOTOR HYPERACTIVITY [None]
  - SUICIDAL IDEATION [None]
  - TREMOR [None]
